FAERS Safety Report 8287302-6 (Version None)
Quarter: 2012Q2

REPORT INFORMATION
  Report Type: 
  Country: None (occurrence: None)
  Receive Date: 20120416
  Receipt Date: 20120416
  Transmission Date: 20120825
  Serious: Yes (Other)
  Sender: FDA-Public Use
  Company Number: None

PATIENT
  Age: 55 Year
  Sex: Male
  Weight: 74.842 kg

DRUGS (1)
  1. MUCINEX DM [Suspect]
     Indication: HYPERSENSITIVITY
     Route: 048
     Dates: start: 20120410, end: 20120410

REACTIONS (1)
  - DIARRHOEA [None]
